FAERS Safety Report 4904108-3 (Version None)
Quarter: 2006Q1

REPORT INFORMATION
  Report Type: 
  Country: None (occurrence: None)
  Receive Date: 20060208
  Receipt Date: 20050105
  Transmission Date: 20060701
  Serious: No
  Sender: FDA-Public Use
  Company Number: US-GLAXOSMITHKLINE-A0539535A

PATIENT
  Age: 13 Year
  Sex: Female

DRUGS (4)
  1. PAROXETINE HCL [Suspect]
     Dosage: 15MG PER DAY
     Route: 048
     Dates: start: 20020101
  2. ADVAIR DISKUS 100/50 [Concomitant]
     Route: 055
  3. CLARITIN [Concomitant]
  4. RISPERDAL [Concomitant]

REACTIONS (4)
  - AGGRESSION [None]
  - DRUG INEFFECTIVE [None]
  - INTERMITTENT EXPLOSIVE DISORDER [None]
  - THEFT [None]
